FAERS Safety Report 5907713-0 (Version None)
Quarter: 2008Q4

REPORT INFORMATION
  Report Type: 
  Country: None (occurrence: None)
  Receive Date: 20081003
  Receipt Date: 19940118
  Transmission Date: 20090506
  Serious: Yes (Death)
  Sender: FDA-Public Use
  Company Number: US-ROCHE-940250005001

PATIENT
  Age: 50 Year
  Sex: Male
  Weight: 78 kg

DRUGS (7)
  1. FLUMAZENIL [Suspect]
     Indication: SEDATION
     Route: 042
     Dates: start: 19940115, end: 19940115
  2. HEPARIN [Concomitant]
     Route: 042
  3. FAMOTIDINE [Concomitant]
     Route: 042
  4. CEFTAZIDIME [Concomitant]
     Route: 042
  5. METHYLPREDNISOLONE [Concomitant]
     Route: 042
  6. QUINIDINE HCL [Concomitant]
     Route: 042
  7. VERAPAMIL [Concomitant]
     Route: 042

REACTIONS (1)
  - DEATH [None]
